FAERS Safety Report 15143717 (Version 1)
Quarter: 2018Q3

REPORT INFORMATION
  Report Type: Spontaneous
  Country: US (occurrence: US)
  Receive Date: 20180713
  Receipt Date: 20180713
  Transmission Date: 20181010
  Serious: Yes (Hospitalization, Other)
  Sender: FDA-Public Use
  Company Number: US-PFIZER INC-2018284444

PATIENT
  Age: 65 Year
  Sex: Male

DRUGS (2)
  1. ADVIL [Suspect]
     Active Substance: IBUPROFEN
     Dosage: UNK
  2. ERIVEDGE [Suspect]
     Active Substance: VISMODEGIB
     Dosage: UNK

REACTIONS (1)
  - Gastric ulcer haemorrhage [Unknown]
